FAERS Safety Report 14308642 (Version 1)
Quarter: 2017Q4

REPORT INFORMATION
  Report Type: Spontaneous
  Country: GB (occurrence: DE)
  Receive Date: 20171220
  Receipt Date: 20171220
  Transmission Date: 20180321
  Serious: Yes (Disabling, Other)
  Sender: FDA-Public Use
  Company Number: DE-FRESENIUS KABI-FK201711002

PATIENT
  Age: 59 Year
  Sex: Female

DRUGS (1)
  1. MOXIFLOXACIN (MANUFACTURER UNKNOWN) [Suspect]
     Active Substance: MOXIFLOXACIN
     Indication: PRODUCT USED FOR UNKNOWN INDICATION
     Route: 065

REACTIONS (3)
  - Gait inability [Unknown]
  - Tendon pain [Unknown]
  - Myalgia [Unknown]
